FAERS Safety Report 13466995 (Version 2)
Quarter: 2017Q2

REPORT INFORMATION
  Report Type: Report from Study
  Country: None (occurrence: BE)
  Receive Date: 20170421
  Receipt Date: 20170424
  Transmission Date: 20170830
  Serious: Yes (Hospitalization)
  Sender: FDA-Public Use
  Company Number: BE-ABBVIE-17K-013-1948766-00

PATIENT
  Sex: Female

DRUGS (8)
  1. DUODOPA [Suspect]
     Active Substance: CARBIDOPA\LEVODOPA
     Dosage: AM=8.5ML??CD=3.8ML/HR DURING 16HRS ??ED=3ML
     Route: 050
     Dates: start: 20170413, end: 20170416
  2. SINEMET 250 [Concomitant]
     Indication: PRODUCT USED FOR UNKNOWN INDICATION
     Dosage: 1 TABLET 3TIMES/DAY + 0.5TABLET 3TIMES/DAY + 0.75 TABLET 2TIMES/DAY
  3. DUODOPA [Suspect]
     Active Substance: CARBIDOPA\LEVODOPA
     Indication: PARKINSON^S DISEASE
     Dosage: AM=9ML??CD=3.8ML/HR DURING 16HRS ??ED=3ML
     Route: 050
     Dates: start: 20170410, end: 20170413
  4. SINEMET CR [Concomitant]
     Active Substance: CARBIDOPA\LEVODOPA
     Indication: SLEEP DISORDER THERAPY
     Dosage: AFTER SHUTTING DOWN THE PUMP
  5. MIRAPEXIN [Concomitant]
     Active Substance: PRAMIPEXOLE
     Indication: SLEEP DISORDER THERAPY
  6. SINEMET 250 [Concomitant]
     Dosage: 1TABLET 3TIMES/DAY + 0.5TABLET 3TIMES/DAY + 0.75 TABLET 2TIMES/DAY, EMERGENCY MEDICATION
  7. PANTOMED [Concomitant]
     Active Substance: DEXPANTHENOL
     Indication: PRODUCT USED FOR UNKNOWN INDICATION
  8. MOTILIUM [Concomitant]
     Active Substance: DOMPERIDONE
     Indication: PRODUCT USED FOR UNKNOWN INDICATION

REACTIONS (4)
  - Abdominal pain [Unknown]
  - Pneumoperitoneum [Unknown]
  - Peritonitis [Unknown]
  - Device leakage [Unknown]
